FAERS Safety Report 6123214-1 (Version None)
Quarter: 2009Q1

REPORT INFORMATION
  Report Type: 
  Country: None (occurrence: None)
  Receive Date: 20090318
  Receipt Date: 20090121
  Transmission Date: 20090719
  Serious: No
  Sender: FDA-Public Use
  Company Number: US-ABBOTT-08P-163-0492135-00

PATIENT
  Sex: Female

DRUGS (1)
  1. BIAXIN XL [Suspect]
     Indication: BRONCHITIS
     Dates: start: 20030101, end: 20030101

REACTIONS (4)
  - DYSPNOEA [None]
  - RASH [None]
  - RASH GENERALISED [None]
  - URTICARIA [None]
